FAERS Safety Report 7543318-6 (Version None)
Quarter: 2011Q2

REPORT INFORMATION
  Report Type: 
  Country: None (occurrence: None)
  Receive Date: 20110524
  Receipt Date: 20110304
  Transmission Date: 20111010
  Serious: No
  Sender: FDA-Public Use
  Company Number: 021631

PATIENT
  Sex: Female
  Weight: 59 kg

DRUGS (7)
  1. FERROUS SULFATE TAB [Concomitant]
  2. PREVACID [Concomitant]
  3. PROZAC [Concomitant]
  4. HYDROCHLOROTHIAZIDE [Concomitant]
  5. SIMVASTATIN [Concomitant]
  6. CIMZIA [Suspect]
     Indication: CROHN'S DISEASE
     Dosage: SUBCUTANEOUS, 400 MG 1X/28 DAYS SUBCUTANEOUS
     Route: 058
     Dates: start: 20090801
  7. CIMZIA [Suspect]
     Indication: CROHN'S DISEASE
     Dosage: SUBCUTANEOUS, 400 MG 1X/28 DAYS SUBCUTANEOUS
     Route: 058
     Dates: start: 20090720

REACTIONS (1)
  - SINUSITIS [None]
